FAERS Safety Report 17549426 (Version 2)
Quarter: 2020Q1

REPORT INFORMATION
  Report Type: Spontaneous
  Country: US (occurrence: US)
  Receive Date: 20200317
  Receipt Date: 20200330
  Transmission Date: 20200409
  Serious: No
  Sender: FDA-Public Use
  Company Number: US-AMGEN-USASP2020043859

PATIENT
  Age: 68 Year
  Sex: Female
  Weight: 79.37 kg

DRUGS (1)
  1. EVENITY [Suspect]
     Active Substance: ROMOSOZUMAB-AQQG
     Indication: OSTEOPOROSIS POSTMENOPAUSAL
     Dosage: 105 MILLIGRAM, QMO
     Route: 065
     Dates: start: 202001

REACTIONS (3)
  - Haematuria [Recovered/Resolved]
  - Off label use [Unknown]
  - Urge incontinence [Recovered/Resolved]

NARRATIVE: CASE EVENT DATE: 202001
